FAERS Safety Report 20669739 (Version 1)
Quarter: 2022Q2

REPORT INFORMATION
  Report Type: Spontaneous
  Country: US (occurrence: US)
  Receive Date: 20220404
  Receipt Date: 20220404
  Transmission Date: 20220721
  Serious: Yes (Death, Hospitalization)
  Sender: FDA-Public Use
  Company Number: US-ELI_LILLY_AND_COMPANY-US202203013206

PATIENT
  Age: 67 Year
  Sex: Male

DRUGS (1)
  1. FORTEO [Suspect]
     Active Substance: TERIPARATIDE
     Indication: Product used for unknown indication
     Dosage: 20 UG, UNKNOWN
     Route: 058

REACTIONS (4)
  - Cardiac arrest [Fatal]
  - COVID-19 [Fatal]
  - Hypertension [Fatal]
  - Swelling [Fatal]

NARRATIVE: CASE EVENT DATE: 20220101
